FAERS Safety Report 4687217-6 (Version None)
Quarter: 2005Q2

REPORT INFORMATION
  Report Type: 
  Country: None (occurrence: None)
  Receive Date: 20050610
  Receipt Date: 20050525
  Transmission Date: 20051028
  Serious: Yes (Hospitalization)
  Sender: FDA-Public Use
  Company Number: PHBS2005JP07615

PATIENT
  Age: 63 Year
  Sex: Male

DRUGS (3)
  1. DIOVAN [Suspect]
     Route: 048
     Dates: start: 20030321, end: 20030419
  2. FAMOTIDINE [Concomitant]
     Dosage: UNK, UNK
     Route: 048
     Dates: end: 20030404
  3. LOXOPROFEN [Concomitant]
     Dosage: UNK, UNK
     Dates: end: 20030404

REACTIONS (2)
  - BLOOD LACTATE DEHYDROGENASE INCREASED [None]
  - COOMBS NEGATIVE HAEMOLYTIC ANAEMIA [None]
